FAERS Safety Report 4436232-6 (Version None)
Quarter: 2004Q3

REPORT INFORMATION
  Report Type: 
  Country: None (occurrence: None)
  Receive Date: 20040830
  Receipt Date: 20040602
  Transmission Date: 20050211
  Serious: No
  Sender: FDA-Public Use
  Company Number: US-BRISTOL-MYERS SQUIBB COMPANY-12603932

PATIENT
  Age: 5 Decade
  Sex: Female
  Weight: 50 kg

DRUGS (5)
  1. ERBITUX [Suspect]
     Indication: COLORECTAL CANCER METASTATIC
     Route: 042
  2. IRINOTECAN [Concomitant]
  3. KYTRIL [Concomitant]
     Indication: PREMEDICATION
  4. DECADRON [Concomitant]
     Indication: PREMEDICATION
  5. PHENERGAN HCL [Concomitant]
     Indication: PREMEDICATION

REACTIONS (1)
  - RASH [None]
